FAERS Safety Report 5257376-5 (Version None)
Quarter: 2007Q1

REPORT INFORMATION
  Report Type: 
  Country: None (occurrence: None)
  Receive Date: 20070307
  Receipt Date: 20060908
  Transmission Date: 20070707
  Serious: No
  Sender: FDA-Public Use
  Company Number: US-GLAXOSMITHKLINE-A0610508A

PATIENT
  Age: 60 Year
  Sex: Male
  Weight: 97.7 kg

DRUGS (5)
  1. REQUIP [Suspect]
     Indication: PARKINSON'S DISEASE
     Dosage: 3MG FOUR TIMES PER DAY
     Route: 048
     Dates: start: 20000101
  2. SINEMET [Concomitant]
     Indication: PARKINSON'S DISEASE
     Route: 048
  3. AMITRIPTYLINE HCL [Concomitant]
     Dosage: 40MG AT NIGHT
     Route: 048
  4. PERCOCET [Concomitant]
     Dosage: 325MG AS REQUIRED
     Route: 048
  5. UNSPECIFIED MEDICATION [Concomitant]
     Dosage: 600MG TWICE PER DAY
     Route: 048

REACTIONS (1)
  - GAMBLING [None]
